FAERS Safety Report 15391635 (Version 1)
Quarter: 2018Q3

REPORT INFORMATION
  Report Type: Spontaneous
  Country: US (occurrence: US)
  Receive Date: 20180917
  Receipt Date: 20180917
  Transmission Date: 20181010
  Serious: No
  Sender: FDA-Public Use
  Company Number: US-GLENMARK PHARMACEUTICALS-2018GMK036498

PATIENT

DRUGS (1)
  1. MUPIROCIN. [Suspect]
     Active Substance: MUPIROCIN
     Indication: SKIN ABRASION
     Dosage: 1 DF, SINGLE
     Route: 065

REACTIONS (2)
  - Application site pain [Unknown]
  - Product use in unapproved indication [Unknown]
